FAERS Safety Report 6266822-X (Version None)
Quarter: 2009Q3

REPORT INFORMATION
  Report Type: 
  Country: None (occurrence: None)
  Receive Date: 20090709
  Receipt Date: 20090709
  Transmission Date: 20100115
  Serious: Yes (Life-Threatening, Hospitalization)
  Sender: FDA-Public Use
  Company Number: None

PATIENT
  Sex: Female
  Weight: 2.3814 kg

DRUGS (1)
  1. RANITIDINE [Suspect]
     Indication: GASTROOESOPHAGEAL REFLUX DISEASE
     Dosage: ORAL
     Route: 048

REACTIONS (3)
  - DIARRHOEA [None]
  - FAILURE TO THRIVE [None]
  - NECROTISING ENTEROCOLITIS NEONATAL [None]
